FAERS Safety Report 18460509 (Version 1)
Quarter: 2020Q4

REPORT INFORMATION
  Report Type: Spontaneous
  Country: US (occurrence: US)
  Receive Date: 20201104
  Receipt Date: 20201104
  Transmission Date: 20210114
  Serious: No
  Sender: FDA-Public Use
  Company Number: US-TEVA-2020-US-1844333

PATIENT
  Age: 66 Year
  Sex: Male

DRUGS (22)
  1. AUSTEDO [Suspect]
     Active Substance: DEUTETRABENAZINE
     Indication: TARDIVE DYSKINESIA
     Dosage: 12 MILLIGRAM DAILY; STARTING TITRATION AT 6 MG BID DOSING
     Dates: start: 20201010
  2. GLIPIZIDE ORAL TABLET 5 MG [Concomitant]
     Route: 048
  3. PRIMIDONE ORAL TABLET 250 MG [Concomitant]
     Route: 048
  4. ALPRAZOLAM ORAL TABLET 1 MG [Concomitant]
     Route: 048
  5. ROPINIROLE HCL ORAL TABLET 2 MG [Concomitant]
     Route: 048
  6. AUSTEDO [Suspect]
     Active Substance: DEUTETRABENAZINE
     Dosage: 18 MILLIGRAM DAILY; 9MG BID X1 WEEK PRIOR TO STARTING 12 MG DOSE
  7. NEXIUM 24H CLEAR MINIS ORAL CAPSULES DELAYED RELEASE 20 MG [Concomitant]
     Route: 048
  8. LAMIVUDINE ORAL TABLET 150 MG [Concomitant]
     Route: 048
  9. TAMSULOSIN HCL ORAL CAPSULES 0.4 MG [Concomitant]
     Indication: PRODUCT USED FOR UNKNOWN INDICATION
     Route: 048
  10. PRAVASTATIN SODIUM ORAL 40 MG [Concomitant]
     Route: 048
  11. ASPIRIN 81 ORAL TABLET DELAYED RELEASE 81 MG [Concomitant]
     Route: 048
  12. LUNESTA ORAL TABLET 3 MG [Concomitant]
     Route: 048
  13. AUSTEDO [Suspect]
     Active Substance: DEUTETRABENAZINE
     Dosage: 24 MILLIGRAM DAILY;
     Dates: start: 20201024, end: 20201027
  14. QUETIAPINE FUMARATE ORAL TABLET 200 G [Concomitant]
     Route: 048
  15. ISENTRESS ORAL TABLET 400 MG [Concomitant]
  16. ABACAVIR SULFATE ORAL TABLET 300 MG [Concomitant]
     Route: 048
  17. GABAPENTIN ORAL TABLET 800 MG [Concomitant]
     Route: 048
  18. BIOTENE DRY MOUTH MOISTURIZING MOUTH/THROAT SOUTION [Concomitant]
  19. DULOXETINE HCL CAPSULE DELAYED RELEASE PARTICLES 30 MG [Concomitant]
     Route: 048
  20. FLUOXETINE HCL ORAL CAPSULE 20 MG [Concomitant]
     Route: 048
  21. TRULICITY SUBCUTANEOUS SOLUTION PEN-INJECTOR 0.75 MG/0.5 ML [Concomitant]
     Route: 058
  22. FENOFIBRATE ORAL TABLET 54 MG [Concomitant]
     Route: 048

REACTIONS (8)
  - Fall [Unknown]
  - Dry mouth [Unknown]
  - Insomnia [Unknown]
  - Arthralgia [Recovering/Resolving]
  - Headache [Recovered/Resolved]
  - Restlessness [Unknown]
  - Chest discomfort [Recovered/Resolved]
  - Incontinence [Unknown]
